FAERS Safety Report 25527457 (Version 1)
Quarter: 2025Q3

REPORT INFORMATION
  Report Type: Spontaneous
  Country: US (occurrence: US)
  Receive Date: 20250708
  Receipt Date: 20250708
  Transmission Date: 20251021
  Serious: Yes (Hospitalization, Other)
  Sender: NOVO NORDISK
  Company Number: US-NOVOPROD-1467306

PATIENT
  Sex: Male

DRUGS (3)
  1. OZEMPIC [Suspect]
     Active Substance: SEMAGLUTIDE
     Indication: Product used for unknown indication
  2. OZEMPIC [Suspect]
     Active Substance: SEMAGLUTIDE
  3. OZEMPIC [Suspect]
     Active Substance: SEMAGLUTIDE
     Indication: Product used for unknown indication

REACTIONS (15)
  - Rectal haemorrhage [Unknown]
  - Vomiting [Unknown]
  - Constipation [Unknown]
  - Corrective lens user [Unknown]
  - Haemorrhoids [Unknown]
  - Drug hypersensitivity [Unknown]
  - Frequent bowel movements [Unknown]
  - Dysphagia [Unknown]
  - Asthenopia [Unknown]
  - Apathy [Unknown]
  - Rash [Unknown]
  - Abdominal discomfort [Unknown]
  - Weight decreased [Unknown]
  - Gastrooesophageal reflux disease [Unknown]
  - Abdominal distension [Unknown]
